FAERS Safety Report 9008959 (Version 2)
Quarter: 2013Q2

REPORT INFORMATION
  Report Type: Spontaneous
  Country: FR (occurrence: FR)
  Receive Date: 20130111
  Receipt Date: 20130612
  Transmission Date: 20140414
  Serious: Yes (Hospitalization)
  Sender: FDA-Public Use
  Company Number: FR-ASTRAZENECA-2013SE00956

PATIENT
  Age: 3787 Week
  Sex: Female

DRUGS (6)
  1. INEXIUM [Suspect]
     Route: 048
     Dates: start: 20121117, end: 20121211
  2. DOLPIRANE [Suspect]
     Route: 048
     Dates: start: 20121029, end: 20121206
  3. AMLODIPINE ARROW [Suspect]
     Indication: HYPERTENSION
     Route: 048
     Dates: start: 20121123
  4. TAHOR [Suspect]
     Indication: HYPERCHOLESTEROLAEMIA
     Route: 048
     Dates: start: 20121030, end: 20121102
  5. TAHOR [Suspect]
     Indication: HYPERCHOLESTEROLAEMIA
     Route: 048
     Dates: start: 20121102, end: 20121206
  6. PERINDOPRIL ARROW [Suspect]
     Indication: HYPERTENSION
     Route: 048
     Dates: start: 20121114

REACTIONS (5)
  - Liver injury [Unknown]
  - Blood alkaline phosphatase increased [Unknown]
  - Gamma-glutamyltransferase increased [Unknown]
  - Alanine aminotransferase increased [Unknown]
  - Aspartate aminotransferase increased [Unknown]
